FAERS Safety Report 16054565 (Version 1)
Quarter: 2019Q1

REPORT INFORMATION
  Report Type: Spontaneous
  Country: US (occurrence: US)
  Receive Date: 20190309
  Receipt Date: 20190309
  Transmission Date: 20190418
  Serious: Yes (Hospitalization)
  Sender: FDA-Public Use
  Company Number: US-TEVA-2019-US-1020909

PATIENT
  Sex: Female

DRUGS (11)
  1. METOPROLOL SUCCINATE. [Suspect]
     Active Substance: METOPROLOL SUCCINATE
     Indication: HEPATIC CANCER
  2. AMLODIPINE BESYLATE. [Suspect]
     Active Substance: AMLODIPINE BESYLATE
     Indication: RENAL CANCER
  3. METOPROLOL SUCCINATE. [Suspect]
     Active Substance: METOPROLOL SUCCINATE
     Indication: RENAL CANCER
     Route: 065
     Dates: start: 20180401
  4. FAMOTIDINE. [Suspect]
     Active Substance: FAMOTIDINE
     Indication: RENAL CANCER
  5. SUTENT [Suspect]
     Active Substance: SUNITINIB MALATE
     Indication: HEPATIC CANCER
     Route: 065
     Dates: start: 20180401
  6. PREDNISONE. [Suspect]
     Active Substance: PREDNISONE
     Indication: HEPATIC CANCER
     Route: 065
     Dates: start: 20180401
  7. SUTENT [Suspect]
     Active Substance: SUNITINIB MALATE
     Indication: RENAL CANCER
  8. AMLODIPINE BESYLATE. [Suspect]
     Active Substance: AMLODIPINE BESYLATE
     Indication: HEPATIC CANCER
     Route: 065
     Dates: start: 20180401
  9. LEVOTHYROXINE. [Concomitant]
     Active Substance: LEVOTHYROXINE
     Dosage: STARTED 20-30YEARS
  10. PREDNISONE. [Suspect]
     Active Substance: PREDNISONE
     Indication: RENAL CANCER
  11. FAMOTIDINE. [Suspect]
     Active Substance: FAMOTIDINE
     Indication: HEPATIC CANCER
     Route: 065
     Dates: start: 20180401

REACTIONS (10)
  - Ill-defined disorder [Recovered/Resolved]
  - Eating disorder [Recovered/Resolved]
  - Fatigue [Not Recovered/Not Resolved]
  - Alopecia [Recovered/Resolved]
  - Dysgeusia [Not Recovered/Not Resolved]
  - Erythema [Not Recovered/Not Resolved]
  - Metatarsalgia [Not Recovered/Not Resolved]
  - Dehydration [Recovered/Resolved]
  - Sensitive skin [Not Recovered/Not Resolved]
  - Platelet count decreased [Recovered/Resolved]

NARRATIVE: CASE EVENT DATE: 20180401
